FAERS Safety Report 8961479 (Version 1)
Quarter: 2012Q4

REPORT INFORMATION
  Report Type: 
  Country: US (occurrence: US)
  Receive Date: 20121213
  Receipt Date: 20121213
  Transmission Date: 20130627
  Serious: No
  Sender: FDA-Public Use
  Company Number: US-ALLERGAN-1200717US

PATIENT
  Sex: Female

DRUGS (2)
  1. ACZONE [Suspect]
     Indication: ACNE
     Dosage: UNK
     Route: 061
     Dates: start: 20111230, end: 20120116
  2. ACZONE [Suspect]
     Indication: ROSACEA
     Dosage: UNK
     Route: 061
     Dates: start: 201112, end: 20111230

REACTIONS (1)
  - Rash [Unknown]
